FAERS Safety Report 19129394 (Version 3)
Quarter: 2022Q2

REPORT INFORMATION
  Report Type: Spontaneous
  Country: US (occurrence: US)
  Receive Date: 20210413
  Receipt Date: 20220513
  Transmission Date: 20220721
  Serious: No
  Sender: FDA-Public Use
  Company Number: US-PFIZER INC-2021205996

PATIENT
  Age: 60 Year
  Sex: Female

DRUGS (1)
  1. XELJANZ XR [Suspect]
     Active Substance: TOFACITINIB CITRATE
     Indication: Rheumatoid arthritis
     Dosage: 11 MG, DAILY (ONCE A DAY)
     Route: 048
     Dates: start: 20210217

REACTIONS (8)
  - Product dose omission in error [Unknown]
  - Therapeutic product effect incomplete [Unknown]
  - Tinnitus [Unknown]
  - Dizziness [Unknown]
  - Inadequate diet [Unknown]
  - Asthenia [Unknown]
  - Depression [Unknown]
  - Discouragement [Unknown]

NARRATIVE: CASE EVENT DATE: 20210901
